FAERS Safety Report 8197179-5 (Version None)
Quarter: 2012Q1

REPORT INFORMATION
  Report Type: 
  Country: None (occurrence: None)
  Receive Date: 20120309
  Receipt Date: 20120301
  Transmission Date: 20120608
  Serious: Yes (Death)
  Sender: FDA-Public Use
  Company Number: SE-SANOFI-AVENTIS-2012SA015375

PATIENT
  Age: 69 Year
  Sex: Male
  Weight: 95.5 kg

DRUGS (12)
  1. LOPERAMIDE HCL [Concomitant]
     Route: 048
     Dates: start: 20111112
  2. COCILLANA-ETYFIN [Concomitant]
     Route: 048
     Dates: start: 20111220
  3. ENALAPRIL MALEATE [Concomitant]
     Route: 048
     Dates: start: 20080107
  4. CABAZITAXEL [Suspect]
     Indication: PROSTATE CANCER
     Route: 042
     Dates: start: 20111108, end: 20111108
  5. CABAZITAXEL [Suspect]
     Route: 042
     Dates: start: 20120221, end: 20120221
  6. GABAPENTIN [Concomitant]
     Route: 048
     Dates: start: 20080114
  7. NORVASC [Concomitant]
     Route: 048
     Dates: start: 20061030
  8. SIMVASTATIN [Concomitant]
     Route: 048
     Dates: start: 20080107
  9. ALFUZOSIN HCL [Concomitant]
     Route: 048
     Dates: start: 20100120
  10. CALCIUM CARBONATE [Concomitant]
     Indication: PROPHYLAXIS
     Route: 048
     Dates: start: 20081216
  11. ASPIRIN [Concomitant]
     Indication: PROPHYLAXIS
     Route: 048
     Dates: start: 20080107
  12. PREDNISONE [Suspect]
     Indication: PROSTATE CANCER
     Dates: start: 20111108

REACTIONS (1)
  - ACUTE CORONARY SYNDROME [None]
